FAERS Safety Report 15134131 (Version 2)
Quarter: 2018Q3

REPORT INFORMATION
  Report Type: Report from Study
  Country: US (occurrence: US)
  Receive Date: 20180712
  Receipt Date: 20180904
  Transmission Date: 20181010
  Serious: No
  Sender: FDA-Public Use
  Company Number: PHEH2018US022682

PATIENT
  Sex: Female

DRUGS (1)
  1. COSENTYX [Suspect]
     Active Substance: SECUKINUMAB
     Indication: PSORIATIC ARTHROPATHY
     Dosage: 150 MG, QMO
     Route: 058

REACTIONS (5)
  - Swelling [Recovering/Resolving]
  - Arthralgia [Recovered/Resolved]
  - Mobility decreased [Unknown]
  - Inappropriate schedule of drug administration [Unknown]
  - Sleep disorder [Recovering/Resolving]
